FAERS Safety Report 9963899 (Version 1)
Quarter: 2014Q1

REPORT INFORMATION
  Report Type: Report from Study
  Country: US (occurrence: US)
  Receive Date: 20140305
  Receipt Date: 20140305
  Transmission Date: 20141002
  Serious: No
  Sender: FDA-Public Use
  Company Number: US-ABBVIE-13P-163-1117523-00

PATIENT
  Age: 18 Year
  Sex: Female

DRUGS (6)
  1. HUMIRA [Suspect]
     Indication: COLITIS ULCERATIVE
     Dates: start: 20130304
  2. HUMIRA [Suspect]
  3. CORTIFOAM 10 % [Concomitant]
     Indication: COLITIS ULCERATIVE
     Route: 054
  4. OTC VSL 3 PROBIOTIC [Concomitant]
     Indication: COLITIS ULCERATIVE
  5. OTC MILK OF MAGNESIA [Concomitant]
     Indication: CONSTIPATION
     Dosage: AT BEDTIME
  6. HYDROCORT [Concomitant]
     Indication: PRODUCT USED FOR UNKNOWN INDICATION
     Dosage: AT BEDTIME

REACTIONS (3)
  - Drug ineffective [Not Recovered/Not Resolved]
  - Injection site urticaria [Not Recovered/Not Resolved]
  - Injection site pain [Not Recovered/Not Resolved]
